FAERS Safety Report 7633164-7 (Version None)
Quarter: 2011Q3

REPORT INFORMATION
  Report Type: 
  Country: None (occurrence: None)
  Receive Date: 20110725
  Receipt Date: 20110719
  Transmission Date: 20111222
  Serious: Yes (Hospitalization)
  Sender: FDA-Public Use
  Company Number: US-SANOFI-AVENTIS-2011SA046563

PATIENT
  Sex: Male

DRUGS (1)
  1. MULTAQ [Suspect]
     Route: 065

REACTIONS (4)
  - LIVER INJURY [None]
  - ATRIAL FIBRILLATION [None]
  - HEPATIC ENZYME INCREASED [None]
  - INTERNATIONAL NORMALISED RATIO INCREASED [None]
